FAERS Safety Report 9254167 (Version 2)
Quarter: 2013Q2

REPORT INFORMATION
  Report Type: Spontaneous
  Country: US (occurrence: None)
  Receive Date: 20130416
  Receipt Date: 20130426
  Transmission Date: 20140414
  Serious: Yes (Other)
  Sender: FDA-Public Use
  Company Number: 2013035369

PATIENT
  Sex: Female

DRUGS (10)
  1. HIZENTRA [Suspect]
     Indication: IMMUNODEFICIENCY COMMON VARIABLE
     Dosage: (1X/WEEK )
     Route: 058
     Dates: start: 20130403, end: 20130403
  2. SEPTRA (BACTRIM /00086101/) [Concomitant]
  3. AUGMENTIN (AUGMENTIN) [Concomitant]
  4. BACTRIM DS (BACTRIM) [Concomitant]
  5. MINOCYCLINE HCL (MINOCYCLINE) [Concomitant]
  6. CATAPRES (CLONIDINE) [Concomitant]
  7. VYVANSE (LISDEXAMFETAMINE DIMESYLATE) [Concomitant]
  8. NASONEX (MOMETASONE FUROATE) [Concomitant]
  9. ASTELIN (DIPROPHYLLINE) [Concomitant]
  10. SYMBICORT [Concomitant]

REACTIONS (7)
  - Headache [None]
  - Pyrexia [None]
  - Somnolence [None]
  - Meningitis aseptic [None]
  - Sinusitis [None]
  - Disease recurrence [None]
  - Pleocytosis [None]
